FAERS Safety Report 10575899 (Version 1)
Quarter: 2014Q4

REPORT INFORMATION
  Report Type: Spontaneous
  Country: US (occurrence: None)
  Receive Date: 20141110
  Receipt Date: 20141110
  Transmission Date: 20150529
  Serious: No
  Sender: FDA-Public Use
  Company Number: None

PATIENT
  Age: 56 Year

DRUGS (1)
  1. CISPLATIN. [Suspect]
     Active Substance: CISPLATIN
     Indication: LUNG NEOPLASM MALIGNANT
     Dosage: WEEKLY X 3
     Route: 042

REACTIONS (9)
  - Vision blurred [None]
  - Chest discomfort [None]
  - Abdominal pain upper [None]
  - Oxygen saturation decreased [None]
  - Confusional state [None]
  - Infusion related reaction [None]
  - Cough [None]
  - Dyspnoea [None]
  - Heart rate increased [None]

NARRATIVE: CASE EVENT DATE: 20140904
